FAERS Safety Report 8792701 (Version 1)
Quarter: 2012Q4

REPORT INFORMATION
  Report Type: Report from Study
  Country: HU (occurrence: HU)
  Receive Date: 20120918
  Receipt Date: 20120918
  Transmission Date: 20130627
  Serious: Yes (Other)
  Sender: FDA-Public Use
  Company Number: HU-ROCHE-1126227

PATIENT
  Sex: Female

DRUGS (2)
  1. XELODA [Suspect]
     Indication: COLORECTAL CANCER
     Route: 048
     Dates: start: 20090710, end: 201001
  2. XELODA [Suspect]
     Indication: METASTASES TO LIVER

REACTIONS (4)
  - Pyrexia [Unknown]
  - Pleurisy [Unknown]
  - Tumour marker increased [Unknown]
  - General physical health deterioration [Unknown]
